FAERS Safety Report 8908895 (Version 1)
Quarter: 2012Q4

REPORT INFORMATION
  Report Type: 
  Country: US (occurrence: US)
  Receive Date: 20121113
  Receipt Date: 20121113
  Transmission Date: 20130627
  Serious: No
  Sender: FDA-Public Use
  Company Number: US-AMGEN-USASP2012011715

PATIENT
  Age: 57 Year
  Sex: Female
  Weight: 104.31 kg

DRUGS (7)
  1. ENBREL [Suspect]
     Indication: PRODUCT USED FOR UNKNOWN INDICATION
     Dosage: 50 mg, qwk
     Route: 058
  2. GLUCOPHAGE FORTE [Concomitant]
     Dosage: 500 mg, UNK
  3. CYMBALTA [Concomitant]
     Dosage: 20 mg, UNK
  4. TRILIPIX [Concomitant]
     Dosage: 45 mg, UNK
  5. PRAVASTATIN [Concomitant]
     Dosage: 10 mg, UNK
  6. ASPIRIN [Concomitant]
     Dosage: 81 mg, UNK
  7. VITAMIN D3 [Concomitant]

REACTIONS (1)
  - Bronchitis [Recovered/Resolved]
